FAERS Safety Report 13960605 (Version 1)
Quarter: 2017Q3

REPORT INFORMATION
  Report Type: Spontaneous
  Country: US (occurrence: US)
  Receive Date: 20170912
  Receipt Date: 20170912
  Transmission Date: 20171128
  Serious: No
  Sender: FDA-Public Use
  Company Number: US-ALLERGAN-1702170US

PATIENT
  Sex: Female
  Weight: 52.15 kg

DRUGS (1)
  1. LEXAPRO [Suspect]
     Active Substance: ESCITALOPRAM OXALATE
     Indication: DEPRESSION
     Dosage: 10 MG, QD
     Route: 048

REACTIONS (4)
  - Depressed mood [Unknown]
  - Insomnia [Unknown]
  - Restlessness [Unknown]
  - Adverse event [Unknown]
